FAERS Safety Report 6295044-1 (Version None)
Quarter: 2009Q3

REPORT INFORMATION
  Report Type: 
  Country: None (occurrence: None)
  Receive Date: 20090731
  Receipt Date: 20090731
  Transmission Date: 20100115
  Serious: Yes (Other)
  Sender: FDA-Public Use
  Company Number: None

PATIENT
  Sex: Female
  Weight: 56.6996 kg

DRUGS (1)
  1. PARAFON FORTE DSC [Suspect]
     Indication: INTERVERTEBRAL DISC DEGENERATION
     Dates: start: 19910814, end: 20090623

REACTIONS (1)
  - LACTOSE INTOLERANCE [None]
